FAERS Safety Report 23740336 (Version 1)
Quarter: 2024Q2

REPORT INFORMATION
  Report Type: Spontaneous
  Country: DZ (occurrence: DZ)
  Receive Date: 20240415
  Receipt Date: 20240415
  Transmission Date: 20240716
  Serious: Yes (Death, Hospitalization, Other)
  Sender: FDA-Public Use
  Company Number: DZ-BAXTER-2024BAX014850

PATIENT
  Age: 21 Year
  Sex: Female
  Weight: 52 kg

DRUGS (5)
  1. MESNA [Interacting]
     Active Substance: MESNA
     Dosage: 5 MG PER DAY
     Route: 042
  2. IFOSFAMIDE [Interacting]
     Active Substance: IFOSFAMIDE
     Indication: Osteosarcoma
     Dosage: 4.5 G PER DAY
     Route: 042
     Dates: start: 20220406, end: 20220406
  3. ETOPOSIDE [Interacting]
     Active Substance: ETOPOSIDE
     Dosage: 22 MG PER DAY
     Route: 042
     Dates: start: 20220406
  4. GRANULOCYTES [Interacting]
     Active Substance: GRANULOCYTES
     Dosage: UNK
     Route: 058
  5. FOSAPREPITANT DIMEGLUMINE [Interacting]
     Active Substance: FOSAPREPITANT DIMEGLUMINE
     Dosage: UNK
     Route: 042

REACTIONS (5)
  - Haematuria [Fatal]
  - Bone marrow failure [Fatal]
  - Coma [Fatal]
  - Encephalopathy [Fatal]
  - Seizure [Fatal]

NARRATIVE: CASE EVENT DATE: 20220421
